FAERS Safety Report 17349723 (Version 6)
Quarter: 2020Q4

REPORT INFORMATION
  Report Type: Report from Study
  Country: DE (occurrence: DE)
  Receive Date: 20200130
  Receipt Date: 20201019
  Transmission Date: 20210113
  Serious: Yes (Other)
  Sender: FDA-Public Use
  Company Number: DE-PFIZER INC-2019154747

PATIENT
  Age: 37 Year
  Sex: Female
  Weight: 75 kg

DRUGS (22)
  1. LYRICA [Suspect]
     Active Substance: PREGABALIN
     Indication: PAIN
     Dosage: 250 MG, DAILY (100MG IN THE MORNING-0-150MG IN THE EVENING)
     Route: 048
  2. OCREVUS [Suspect]
     Active Substance: OCRELIZUMAB
     Dosage: 600 MG, UNK
     Route: 042
     Dates: start: 20181126
  3. LYRICA [Suspect]
     Active Substance: PREGABALIN
     Dosage: 200 MG, DAILY (IN THE MORNING 75 MG, 125 MG IN THE EVENING)
     Route: 048
     Dates: start: 20190308, end: 2019
  4. OCREVUS [Suspect]
     Active Substance: OCRELIZUMAB
     Dosage: 300 MG, UNK (SECOND INFUSION ON 22MAY2018)
     Route: 042
     Dates: start: 20180522, end: 2018
  5. VESIKUR [Concomitant]
     Active Substance: SOLIFENACIN SUCCINATE
     Dosage: 10 MG, 1X/DAY (0-1-0)
     Route: 065
  6. OCREVUS [Suspect]
     Active Substance: OCRELIZUMAB
     Dosage: UNK
     Route: 042
     Dates: start: 202006
  7. L-THYROXINE [LEVOTHYROXINE] [Concomitant]
     Active Substance: LEVOTHYROXINE
     Dosage: 25 MG, 1X/DAY (1-0-0)
     Route: 065
  8. PARACODIN [DIHYDROCODEINE] [Concomitant]
     Dosage: UNK
  9. LYRICA [Suspect]
     Active Substance: PREGABALIN
     Dosage: 125 MG DAILY (50 MG IN THE MORNING, 75 MG IN THE EVENING)
     Route: 048
  10. LYRICA [Suspect]
     Active Substance: PREGABALIN
     Dosage: 100 MG, AS NEEDED
     Route: 048
     Dates: start: 2019, end: 2019
  11. OXCARBAZEPIN [Concomitant]
     Active Substance: OXCARBAZEPINE
     Indication: TRIGEMINAL NEURALGIA
     Dosage: 150 MG IN MORNING, 100 MG IN EVENING
  12. OCREVUS [Suspect]
     Active Substance: OCRELIZUMAB
     Dosage: 600 MG, UNK
     Route: 042
     Dates: start: 20181126, end: 2018
  13. CARVEDILOL. [Concomitant]
     Active Substance: CARVEDILOL
     Indication: HYPERTENSION
     Dosage: 12.5 MG, 1X/DAY (1-0-0)
     Route: 048
  14. NORSPAN [Concomitant]
     Active Substance: BUPRENORPHINE
     Indication: PAIN
     Dosage: WEEKLY REPLACEMENT
     Route: 062
  15. BACLOFEN. [Concomitant]
     Active Substance: BACLOFEN
     Indication: MUSCLE SPASTICITY
     Dosage: 10 MG, 1X/DAY (0-0-1)
     Route: 065
  16. OCREVUS [Suspect]
     Active Substance: OCRELIZUMAB
     Dosage: 600 MG, UNK
     Route: 042
     Dates: start: 20190605
  17. CARVEDILOL. [Concomitant]
     Active Substance: CARVEDILOL
     Dosage: 6.25 MG, 1X/DAY (IN THE MORNING, 1-0-0)
     Route: 048
  18. OXCARBAZEPIN [Concomitant]
     Active Substance: OXCARBAZEPINE
     Indication: PAIN
     Dosage: 150 MG, 2X/DAY
     Route: 065
  19. LYRICA [Suspect]
     Active Substance: PREGABALIN
     Dosage: 100 MG DAILY (25 MG IN THE MORNING, 75 MG IN THE EVENING)
     Route: 048
     Dates: start: 2019
  20. LYRICA [Suspect]
     Active Substance: PREGABALIN
     Dosage: 50 MG, UNK
     Route: 048
  21. OCREVUS [Suspect]
     Active Substance: OCRELIZUMAB
     Indication: RELAPSING-REMITTING MULTIPLE SCLEROSIS
     Dosage: 300 MG, UNK (SECOND INFUSION ON 22MAY2018)
     Route: 042
     Dates: start: 20180508, end: 201805
  22. OCREVUS [Suspect]
     Active Substance: OCRELIZUMAB
     Dosage: UNK
     Route: 042
     Dates: start: 20190506, end: 2019

REACTIONS (44)
  - Vocal cord inflammation [Recovered/Resolved]
  - Multiple sclerosis relapse [Not Recovered/Not Resolved]
  - Menstruation delayed [Recovered/Resolved]
  - Drug ineffective [Unknown]
  - Condition aggravated [Recovered/Resolved]
  - Skin papilloma [Recovered/Resolved]
  - Neurodermatitis [Recovered/Resolved]
  - Atrioventricular block [Unknown]
  - Blood blister [Recovered/Resolved]
  - Hypersensitivity [Recovered/Resolved]
  - Tooth fracture [Recovered/Resolved]
  - Fatigue [Not Recovered/Not Resolved]
  - Nausea [Recovered/Resolved]
  - Abdominal pain upper [Recovered/Resolved]
  - Auditory disorder [Recovered/Resolved]
  - Neutrophil count increased [Not Recovered/Not Resolved]
  - Vascular calcification [Not Recovered/Not Resolved]
  - Blood cholesterol increased [Not Recovered/Not Resolved]
  - Weight increased [Not Recovered/Not Resolved]
  - Automatic bladder [Recovered/Resolved]
  - Fluid retention [Not Recovered/Not Resolved]
  - Chest pain [Not Recovered/Not Resolved]
  - Pulpitis dental [Recovered/Resolved]
  - Abscess [Recovered/Resolved]
  - Abscess oral [Recovered/Resolved]
  - Hypotension [Not Recovered/Not Resolved]
  - Lipoedema [Not Recovered/Not Resolved]
  - Multiple sclerosis [Not Recovered/Not Resolved]
  - Dysuria [Recovered/Resolved]
  - Tooth dislocation [Not Recovered/Not Resolved]
  - Renal cyst [Not Recovered/Not Resolved]
  - Lymphocyte count decreased [Unknown]
  - Oedema [Not Recovered/Not Resolved]
  - Trigeminal neuralgia [Not Recovered/Not Resolved]
  - Paralysis [Recovered/Resolved]
  - Mitral valve incompetence [Not Recovered/Not Resolved]
  - Bladder disorder [Unknown]
  - Fatigue [Recovered/Resolved]
  - Eczema [Recovered/Resolved]
  - Lymphoedema [Not Recovered/Not Resolved]
  - Agitation [Recovered/Resolved]
  - Viral titre decreased [Recovered/Resolved]
  - Sensory disturbance [Not Recovered/Not Resolved]
  - Neuralgia [Recovered/Resolved]

NARRATIVE: CASE EVENT DATE: 20180508
